FAERS Safety Report 8473812-5 (Version None)
Quarter: 2012Q2

REPORT INFORMATION
  Report Type: 
  Country: None (occurrence: None)
  Receive Date: 20120628
  Receipt Date: 20120109
  Transmission Date: 20120825
  Serious: Yes (Other)
  Sender: FDA-Public Use
  Company Number: US-MYLANLABS-2011S1024776

PATIENT
  Age: 81 Year
  Sex: Female

DRUGS (15)
  1. TENORMIN [Concomitant]
  2. CLOZAPINE [Suspect]
     Dates: start: 20111108, end: 20111201
  3. FLECTOR /00372302/ [Concomitant]
     Route: 062
  4. TRAMADOL HCL [Concomitant]
  5. ACETAMINOPHEN [Concomitant]
  6. COLACE [Concomitant]
  7. CLOZAPINE [Suspect]
     Indication: DELIRIUM
     Dates: start: 20111108, end: 20111201
  8. CLOZAPINE [Suspect]
     Indication: DEMENTIA
     Dates: start: 20111108, end: 20111201
  9. ARICEPT [Concomitant]
  10. CLOZAPINE [Suspect]
     Dates: start: 20111108, end: 20111201
  11. CLOZAPINE [Suspect]
     Dates: start: 20111108, end: 20111201
  12. CYMBALTA [Concomitant]
  13. CLOZAPINE [Suspect]
     Indication: DEPRESSION
     Dates: start: 20111108, end: 20111201
  14. MYLANTA [Concomitant]
  15. ASPIRIN [Concomitant]

REACTIONS (2)
  - LEUKOPENIA [None]
  - GRANULOCYTOPENIA [None]
